FAERS Safety Report 7621675-X (Version None)
Quarter: 2011Q3

REPORT INFORMATION
  Report Type: 
  Country: None (occurrence: None)
  Receive Date: 20110719
  Receipt Date: 20110715
  Transmission Date: 20111222
  Serious: Yes (Death)
  Sender: FDA-Public Use
  Company Number: CN-ASTRAZENECA-2011SE41599

PATIENT
  Age: 44 Year
  Sex: Female

DRUGS (2)
  1. IRESSA [Suspect]
     Indication: LUNG CANCER METASTATIC
     Route: 048
     Dates: start: 20051014, end: 20051119
  2. IRESSA [Suspect]
     Route: 048
     Dates: start: 20051124, end: 20051126

REACTIONS (3)
  - RESPIRATORY FAILURE [None]
  - HAEMORRHAGE SUBCUTANEOUS [None]
  - VAGINAL HAEMORRHAGE [None]
